FAERS Safety Report 5765546-2 (Version None)
Quarter: 2008Q2

REPORT INFORMATION
  Report Type: 
  Country: None (occurrence: None)
  Receive Date: 20080611
  Receipt Date: 20080530
  Transmission Date: 20081010
  Serious: Yes (Other)
  Sender: FDA-Public Use
  Company Number: US-GILEAD-2008-0016676

PATIENT
  Age: 30 Year
  Sex: Male

DRUGS (1)
  1. TRUVADA [Suspect]

REACTIONS (3)
  - FANCONI SYNDROME ACQUIRED [None]
  - HYPERPHOSPHATAEMIA [None]
  - PROTEINURIA [None]
